FAERS Safety Report 6261126-3 (Version None)
Quarter: 2009Q3

REPORT INFORMATION
  Report Type: 
  Country: None (occurrence: None)
  Receive Date: 20090709
  Receipt Date: 20081229
  Transmission Date: 20100115
  Serious: No
  Sender: FDA-Public Use
  Company Number: US-KINGPHARMUSA00001-K200801457

PATIENT
  Sex: Female

DRUGS (3)
  1. LEVOXYL [Suspect]
     Dosage: 100 MCG, UNK
     Route: 048
  2. LEVOXYL [Suspect]
     Dosage: 75 MCG, UNK
     Route: 048
  3. LEVOXYL [Suspect]
     Dosage: 50 MCG, UNK
     Route: 048

REACTIONS (3)
  - BONE PAIN [None]
  - DEPRESSION [None]
  - NERVOUS SYSTEM DISORDER [None]
